FAERS Safety Report 8791803 (Version 3)
Quarter: 2013Q1

REPORT INFORMATION
  Report Type: Spontaneous
  Country: DE (occurrence: DE)
  Receive Date: 20120918
  Receipt Date: 20130227
  Transmission Date: 20140127
  Serious: Yes (Hospitalization)
  Sender: FDA-Public Use
  Company Number: DE-CELGENEUS-062-21880-12080556

PATIENT
  Age: 65 Year
  Sex: Male

DRUGS (11)
  1. REVLIMID [Suspect]
     Indication: PLASMA CELL MYELOMA
     Dosage: 25 MILLIGRAM
     Route: 048
     Dates: start: 20120724, end: 20120731
  2. REVLIMID [Suspect]
     Dosage: 25 MILLIGRAM
     Route: 048
     Dates: start: 20120821, end: 20120826
  3. REVLIMID [Suspect]
     Dosage: 25 MILLIGRAM
     Route: 048
     Dates: start: 20120826, end: 20120903
  4. REVLIMID [Suspect]
     Dosage: 25 MILLIGRAM
     Route: 048
     Dates: start: 20120724, end: 20120903
  5. DEXAMETHASONE [Suspect]
     Indication: PLASMA CELL MYELOMA
     Dosage: 8 MILLIGRAM
     Route: 048
     Dates: start: 20120724, end: 20120731
  6. DEXAMETHASONE [Suspect]
     Dosage: 8 MILLIGRAM
     Route: 048
     Dates: start: 20120826, end: 20120826
  7. DEXAMETHASONE [Suspect]
     Dosage: 8 MILLIGRAM
     Route: 048
     Dates: start: 20120724, end: 20120821
  8. ACIC [Concomitant]
     Indication: PRODUCT USED FOR UNKNOWN INDICATION
     Route: 065
     Dates: start: 20120724
  9. COTRIM FORTE [Concomitant]
     Indication: PRODUCT USED FOR UNKNOWN INDICATION
     Route: 065
     Dates: start: 20120724, end: 20120731
  10. PANTOZOL [Concomitant]
     Indication: PRODUCT USED FOR UNKNOWN INDICATION
     Route: 065
     Dates: start: 20120724
  11. CLEXANE [Concomitant]
     Indication: PRODUCT USED FOR UNKNOWN INDICATION
     Route: 065
     Dates: start: 20120724

REACTIONS (3)
  - Hyperkalaemia [Recovered/Resolved]
  - Pyrexia [Recovered/Resolved]
  - Pyrexia [Recovered/Resolved]
